FAERS Safety Report 8926429 (Version 2)
Quarter: 2012Q4

REPORT INFORMATION
  Report Type: 
  Country: DE (occurrence: DE)
  Receive Date: 20121127
  Receipt Date: 20121129
  Transmission Date: 20130627
  Serious: Yes (Hospitalization)
  Sender: FDA-Public Use
  Company Number: DE-PFIZER INC-2012289152

PATIENT
  Age: 59 Year
  Sex: Female
  Weight: 59 kg

DRUGS (3)
  1. PANTOZOL [Suspect]
     Indication: GASTRIC RESECTION
     Dosage: 40 mg, daily
     Route: 048
     Dates: start: 2005, end: 2006
  2. OMEPRAZOLE [Suspect]
     Indication: GASTRIC RESECTION
     Dosage: 40 mg, UNK
     Route: 048
     Dates: start: 2005, end: 2006
  3. NEXIUM [Suspect]
     Indication: GASTRIC RESECTION
     Dosage: 20 mg, UNK
     Route: 048
     Dates: start: 2006

REACTIONS (7)
  - Abnormal sensation in eye [Not Recovered/Not Resolved]
  - Asthenia [Not Recovered/Not Resolved]
  - Dizziness [Not Recovered/Not Resolved]
  - Visual acuity reduced [Not Recovered/Not Resolved]
  - Visual impairment [Not Recovered/Not Resolved]
  - Hypoaesthesia eye [Not Recovered/Not Resolved]
  - Ocular discomfort [Not Recovered/Not Resolved]
